FAERS Safety Report 15145226 (Version 1)
Quarter: 2018Q3

REPORT INFORMATION
  Report Type: Spontaneous
  Country: US (occurrence: US)
  Receive Date: 20180713
  Receipt Date: 20180713
  Transmission Date: 20181010
  Serious: No
  Sender: FDA-Public Use
  Company Number: US-INTERCEPT-PMOCA2017000129

PATIENT

DRUGS (11)
  1. PRAVACHOL [Concomitant]
     Active Substance: PRAVASTATIN SODIUM
  2. URSO FORTE [Concomitant]
     Active Substance: URSODIOL
  3. OCALIVA [Suspect]
     Active Substance: OBETICHOLIC ACID
     Dosage: 10 MG, QD
     Route: 048
  4. OXYCODONE [Concomitant]
     Active Substance: OXYCODONE
  5. VITAMIN D [Concomitant]
     Active Substance: CHOLECALCIFEROL
  6. AMOXICILLIN. [Concomitant]
     Active Substance: AMOXICILLIN
  7. OCALIVA [Suspect]
     Active Substance: OBETICHOLIC ACID
     Indication: PRIMARY BILIARY CHOLANGITIS
     Dosage: 5 MG, QD
     Route: 048
     Dates: start: 20170323
  8. COUMADIN [Concomitant]
     Active Substance: WARFARIN SODIUM
  9. URSODIOL. [Concomitant]
     Active Substance: URSODIOL
  10. SYNTHROID [Concomitant]
     Active Substance: LEVOTHYROXINE SODIUM
  11. COREG [Concomitant]
     Active Substance: CARVEDILOL

REACTIONS (3)
  - Pruritus [Unknown]
  - Thyroid disorder [Unknown]
  - Rash [Unknown]

NARRATIVE: CASE EVENT DATE: 201706
